FAERS Safety Report 9322517 (Version 1)
Quarter: 2013Q2

REPORT INFORMATION
  Report Type: Spontaneous
  Country: US (occurrence: US)
  Receive Date: 20130531
  Receipt Date: 20130531
  Transmission Date: 20140414
  Serious: Yes (Other)
  Sender: FDA-Public Use
  Company Number: CHPA2013US009217

PATIENT
  Age: 53 Year
  Sex: Female

DRUGS (1)
  1. GAS-X EXTRA STRENGTH SOFTGELS [Suspect]
     Indication: IRRITABLE BOWEL SYNDROME
     Dosage: 1 TABLET UP TO 5 TIMES PER DAY
     Route: 048
     Dates: start: 201304

REACTIONS (4)
  - Infection [Recovered/Resolved]
  - Diarrhoea [Recovered/Resolved]
  - Off label use [Unknown]
  - Overdose [Unknown]
